FAERS Safety Report 6094813-0 (Version None)
Quarter: 2009Q1

REPORT INFORMATION
  Report Type: 
  Country: None (occurrence: None)
  Receive Date: 20090225
  Receipt Date: 20090210
  Transmission Date: 20090719
  Serious: Yes (Hospitalization, Other)
  Sender: FDA-Public Use
  Company Number: 2009MB000013

PATIENT
  Age: 57 Year
  Sex: Female
  Weight: 99.7913 kg

DRUGS (26)
  1. KEFLEX [Suspect]
     Indication: LOCALISED INFECTION
     Dates: start: 20080709, end: 20080101
  2. BYETTA [Suspect]
     Indication: DIABETES MELLITUS
     Dosage: 10 UG; BID; SC, 5 UG; BID; SC, 10 UG; BID; SC, 5 UG; BID; SC
     Route: 058
     Dates: start: 20060101, end: 20060201
  3. BYETTA [Suspect]
     Indication: DIABETES MELLITUS
     Dosage: 10 UG; BID; SC, 5 UG; BID; SC, 10 UG; BID; SC, 5 UG; BID; SC
     Route: 058
     Dates: start: 20060201, end: 20080714
  4. BYETTA [Suspect]
     Indication: DIABETES MELLITUS
     Dosage: 10 UG; BID; SC, 5 UG; BID; SC, 10 UG; BID; SC, 5 UG; BID; SC
     Route: 058
     Dates: start: 20080901, end: 20081001
  5. BYETTA [Suspect]
     Indication: DIABETES MELLITUS
     Dosage: 10 UG; BID; SC, 5 UG; BID; SC, 10 UG; BID; SC, 5 UG; BID; SC
     Route: 058
     Dates: start: 20081001
  6. METFORMIN [Concomitant]
  7. ACTOS [Concomitant]
  8. AMBIEN [Concomitant]
  9. AMLODIPINE BESYLATE [Concomitant]
  10. ASPIRIN [Concomitant]
  11. COZAAR [Concomitant]
  12. CYMBALTA [Concomitant]
  13. DESIPRAMINE HYDROCHLORIDE [Concomitant]
  14. NOVO-FENOFIBRATE MICRONIZED [Concomitant]
  15. FISH OIL [Concomitant]
  16. OMEPRAZOLE [Concomitant]
  17. VITAMIN D [Concomitant]
  18. ASCORBIC ACID [Concomitant]
  19. XANAX [Concomitant]
  20. XANAX XR [Concomitant]
  21. FLUOCINONIDE [Concomitant]
  22. FLUOROMETHOLONE [Concomitant]
  23. GENTEAL [Concomitant]
  24. RESTASIS [Concomitant]
  25. IBUPROFEN [Concomitant]
  26. MULTI-VITAMINS [Concomitant]

REACTIONS (8)
  - BURNS SECOND DEGREE [None]
  - CANDIDIASIS [None]
  - CONJUNCTIVITIS [None]
  - KERATOCONJUNCTIVITIS SICCA [None]
  - NERVE INJURY [None]
  - PHOTOSENSITIVITY REACTION [None]
  - SCAR [None]
  - STEVENS-JOHNSON SYNDROME [None]
